FAERS Safety Report 14764503 (Version 1)
Quarter: 2018Q2

REPORT INFORMATION
  Report Type: Spontaneous
  Country: IT (occurrence: IT)
  Receive Date: 20180416
  Receipt Date: 20180416
  Transmission Date: 20180711
  Serious: Yes (Other)
  Sender: FDA-Public Use
  Company Number: IT-PFIZER INC-2018151397

PATIENT
  Age: 47 Year
  Sex: Female

DRUGS (2)
  1. RISPERDAL [Suspect]
     Active Substance: RISPERIDONE
     Dosage: 12 MG, SINGLE
     Route: 048
     Dates: start: 20180308, end: 20180308
  2. XANAX [Suspect]
     Active Substance: ALPRAZOLAM
     Dosage: 20 MG, SINGLE
     Route: 048
     Dates: start: 20180308, end: 20180308

REACTIONS (3)
  - Sluggishness [Unknown]
  - Intentional self-injury [Unknown]
  - Intentional overdose [Unknown]

NARRATIVE: CASE EVENT DATE: 20180308
